FAERS Safety Report 6329401-1 (Version None)
Quarter: 2009Q3

REPORT INFORMATION
  Report Type: 
  Country: None (occurrence: None)
  Receive Date: 20090826
  Receipt Date: 20090817
  Transmission Date: 20100115
  Serious: Yes (Other)
  Sender: FDA-Public Use
  Company Number: A0802877A

PATIENT
  Sex: Female
  Weight: 60.4 kg

DRUGS (4)
  1. ELTROMBOPAG [Suspect]
     Route: 048
     Dates: start: 20090624, end: 20090816
  2. ELTROMBOPAG [Suspect]
     Indication: THROMBOCYTOPENIA
     Dosage: 25MG PER DAY
     Route: 048
     Dates: start: 20090609, end: 20090623
  3. PEG-INTRON [Suspect]
     Dosage: 80MCG WEEKLY
     Route: 058
     Dates: start: 20090623
  4. REBETOL [Suspect]
     Route: 048
     Dates: start: 20090623

REACTIONS (2)
  - CATARACT [None]
  - GLAUCOMA [None]
